FAERS Safety Report 8599604-4 (Version None)
Quarter: 2012Q3

REPORT INFORMATION
  Report Type: 
  Country: None (occurrence: None)
  Receive Date: 20120816
  Receipt Date: 20120814
  Transmission Date: 20120928
  Serious: No
  Sender: FDA-Public Use
  Company Number: US-PFIZER INC-2012199714

PATIENT
  Age: 36 Year
  Sex: Female
  Weight: 85.261 kg

DRUGS (3)
  1. CHANTIX [Suspect]
     Indication: SMOKING CESSATION THERAPY
     Dosage: 0.5 MG, DAILY
     Route: 048
     Dates: start: 20120801, end: 20120801
  2. RESTORIL [Concomitant]
     Indication: SCHIZOPHRENIA
     Dosage: 5 MG, DAILY
  3. CHANTIX [Suspect]
     Dosage: UNK
     Route: 048
     Dates: start: 20120801, end: 20120801

REACTIONS (1)
  - TOOTH DISCOLOURATION [None]
